FAERS Safety Report 10611392 (Version 1)
Quarter: 2014Q4

REPORT INFORMATION
  Report Type: Spontaneous
  Country: US (occurrence: US)
  Receive Date: 20141126
  Receipt Date: 20141126
  Transmission Date: 20150529
  Serious: No
  Sender: FDA-Public Use
  Company Number: US-PFIZER INC-2014323556

PATIENT
  Age: 49 Year
  Sex: Female
  Weight: 70.3 kg

DRUGS (4)
  1. METFORMIN [Concomitant]
     Active Substance: METFORMIN HYDROCHLORIDE
     Dosage: UNK
  2. ZOCOR [Concomitant]
     Active Substance: SIMVASTATIN
     Indication: BLOOD CHOLESTEROL INCREASED
     Dosage: 40 MG, UNK
  3. PRISTIQ EXTENDED RELEASE [Suspect]
     Active Substance: DESVENLAFAXINE SUCCINATE
     Indication: MENOPAUSE
     Dosage: 25 MG, 1X/DAY
     Dates: start: 2014
  4. VICTOZA [Concomitant]
     Active Substance: LIRAGLUTIDE
     Dosage: UNK

REACTIONS (3)
  - Rash [Recovered/Resolved with Sequelae]
  - Blister rupture [Recovered/Resolved with Sequelae]
  - Blister [Recovered/Resolved with Sequelae]
